FAERS Safety Report 13945750 (Version 5)
Quarter: 2021Q1

REPORT INFORMATION
  Report Type: Spontaneous
  Country: JP (occurrence: JP)
  Receive Date: 20170907
  Receipt Date: 20210122
  Transmission Date: 20210419
  Serious: Yes (Hospitalization, Other)
  Sender: FDA-Public Use
  Company Number: JP-UNITED THERAPEUTICS-UNT-2016-005268

PATIENT
  Age: 23 Year
  Sex: Male
  Weight: 42 kg

DRUGS (32)
  1. REMODULIN [Suspect]
     Active Substance: TREPROSTINIL
     Dosage: UNK, CONTINUING
     Route: 041
     Dates: start: 201607
  2. K?SUPPLY [Concomitant]
     Active Substance: POTASSIUM CHLORIDE
     Indication: HYPOKALAEMIA
  3. CALONAL [Concomitant]
     Active Substance: ACETAMINOPHEN
     Indication: HEADACHE
     Dosage: UNK
     Route: 065
  4. OPSUMIT [Concomitant]
     Active Substance: MACITENTAN
     Indication: PULMONARY ARTERIAL HYPERTENSION
  5. REMODULIN [Suspect]
     Active Substance: TREPROSTINIL
     Dosage: UNK, CONTINUING
     Route: 041
     Dates: start: 20160405, end: 20160613
  6. REMODULIN [Suspect]
     Active Substance: TREPROSTINIL
     Dosage: 0.030 ?G/KG, CONTINUING
     Route: 041
     Dates: start: 2016
  7. TAKEPRON [Concomitant]
     Active Substance: LANSOPRAZOLE
     Indication: GASTRITIS PROPHYLAXIS
     Dosage: UNK
     Route: 048
  8. FERROUS SULFATE. [Concomitant]
     Active Substance: FERROUS SULFATE
     Indication: PROPHYLAXIS
  9. URSO [Concomitant]
     Active Substance: URSODIOL
     Indication: HEPATITIS B
     Dosage: UNK
     Route: 048
     Dates: start: 20150928, end: 20170829
  10. TRACLEER [Concomitant]
     Active Substance: BOSENTAN
     Indication: VENTRICULAR SEPTAL DEFECT
     Dosage: UNK
     Route: 065
  11. REMODULIN [Suspect]
     Active Substance: TREPROSTINIL
     Indication: VENTRICULAR SEPTAL DEFECT
     Dosage: 0.040 ?G/KG, CONTINUING
     Route: 041
     Dates: start: 2015
  12. VOLIBRIS [Concomitant]
     Active Substance: AMBRISENTAN
     Indication: VENTRICULAR SEPTAL DEFECT
  13. ADCIRCA [Concomitant]
     Active Substance: TADALAFIL
     Indication: VENTRICULAR SEPTAL DEFECT
  14. TRACLEER [Concomitant]
     Active Substance: BOSENTAN
     Indication: PULMONARY ARTERIAL HYPERTENSION
  15. ADEMPAS [Concomitant]
     Active Substance: RIOCIGUAT
     Indication: VENTRICULAR SEPTAL DEFECT
     Dosage: UNK
     Route: 048
     Dates: start: 20160126
  16. REMODULIN [Suspect]
     Active Substance: TREPROSTINIL
     Indication: PULMONARY ARTERIAL HYPERTENSION
     Dosage: UNK, CONTINUING
     Route: 041
     Dates: start: 20150825, end: 2015
  17. REMODULIN [Suspect]
     Active Substance: TREPROSTINIL
     Dosage: 0.034 ?G/KG, CONTINUING
     Route: 041
     Dates: start: 201602, end: 20160329
  18. VOLIBRIS [Concomitant]
     Active Substance: AMBRISENTAN
     Indication: PULMONARY ARTERIAL HYPERTENSION
     Dosage: UNK
     Route: 048
     Dates: start: 200904, end: 20151001
  19. FERROUS SULFATE. [Concomitant]
     Active Substance: FERROUS SULFATE
     Indication: MINERAL SUPPLEMENTATION
     Dosage: UNK
     Route: 048
     Dates: start: 20150811, end: 20160310
  20. ADEMPAS [Concomitant]
     Active Substance: RIOCIGUAT
     Indication: PULMONARY ARTERIAL HYPERTENSION
  21. REMODULIN [Suspect]
     Active Substance: TREPROSTINIL
     Indication: VENTRICULAR SEPTAL DEFECT
     Dosage: 0.024 ?G/KG, CONTINUING
     Route: 058
     Dates: start: 201603, end: 20160405
  22. REMODULIN [Suspect]
     Active Substance: TREPROSTINIL
     Dosage: 0.0405 ?G/KG, CONTINUING
     Route: 041
     Dates: end: 201602
  23. REMODULIN [Suspect]
     Active Substance: TREPROSTINIL
     Dosage: 0.085 ?G/KG, CONTINUING
     Route: 041
  24. FUROSEMIDE. [Concomitant]
     Active Substance: FUROSEMIDE
     Indication: FLUID RETENTION
     Dosage: UNK
     Route: 048
  25. SELARA [Concomitant]
     Active Substance: EPLERENONE
     Indication: FLUID RETENTION
     Dosage: UNK
     Route: 048
  26. REMODULIN [Suspect]
     Active Substance: TREPROSTINIL
     Indication: PULMONARY ARTERIAL HYPERTENSION
     Dosage: UNK, CONTINUING
     Route: 058
     Dates: start: 20160329, end: 201603
  27. BARACLUDE [Concomitant]
     Active Substance: ENTECAVIR
     Indication: ANTIVIRAL TREATMENT
     Dosage: UNK
     Route: 048
  28. REMODULIN [Suspect]
     Active Substance: TREPROSTINIL
     Dosage: 0.014 ?G/KG, CONTINUING
     Route: 058
     Dates: start: 2016
  29. REMODULIN [Suspect]
     Active Substance: TREPROSTINIL
     Dosage: 0.0145 ?G/KG, CONTINUING
     Route: 058
     Dates: start: 2016
  30. ADCIRCA [Concomitant]
     Active Substance: TADALAFIL
     Indication: PULMONARY ARTERIAL HYPERTENSION
     Dosage: UNK
     Route: 048
     Dates: start: 201503, end: 20160125
  31. K?SUPPLY [Concomitant]
     Active Substance: POTASSIUM CHLORIDE
     Indication: MINERAL SUPPLEMENTATION
     Dosage: UNK
     Route: 048
     Dates: end: 20160914
  32. OPSUMIT [Concomitant]
     Active Substance: MACITENTAN
     Indication: VENTRICULAR SEPTAL DEFECT
     Dosage: UNK
     Route: 048
     Dates: start: 20151002

REACTIONS (12)
  - Injection site pain [Recovered/Resolved]
  - Complication associated with device [Unknown]
  - Device related infection [Recovered/Resolved]
  - Injection site erythema [Recovered/Resolved]
  - Injection site warmth [Recovered/Resolved]
  - Catheter site infection [Unknown]
  - Vascular device infection [Recovered/Resolved]
  - Sleep disorder [Unknown]
  - Decreased appetite [Unknown]
  - Venous occlusion [Unknown]
  - Bronchitis [Recovered/Resolved]
  - Vascular device infection [Recovered/Resolved]

NARRATIVE: CASE EVENT DATE: 20160219
